FAERS Safety Report 8177947-6 (Version None)
Quarter: 2012Q1

REPORT INFORMATION
  Report Type: 
  Country: None (occurrence: None)
  Receive Date: 20120126
  Receipt Date: 20111208
  Transmission Date: 20120608
  Serious: No
  Sender: FDA-Public Use
  Company Number: PHEH2011US011467

PATIENT
  Age: 64 Year
  Sex: Female
  Weight: 63.3 kg

DRUGS (1)
  1. AFINITOR [Suspect]
     Indication: PANCREATIC NEOPLASM
     Dosage: 10 MG, DAILY, ORAL
     Route: 048
     Dates: start: 20111126, end: 20111127

REACTIONS (3)
  - ABDOMINAL PAIN UPPER [None]
  - MUSCLE CONTRACTIONS INVOLUNTARY [None]
  - VOMITING [None]
